FAERS Safety Report 7236220-0 (Version None)
Quarter: 2011Q1

REPORT INFORMATION
  Report Type: 
  Country: None (occurrence: None)
  Receive Date: 20110120
  Receipt Date: 20110110
  Transmission Date: 20110831
  Serious: Yes (Other)
  Sender: FDA-Public Use
  Company Number: TR-WATSON-2011-00398

PATIENT
  Age: 16 Year
  Sex: Male

DRUGS (3)
  1. AMIKACIN [Suspect]
     Indication: VOLVULUS
     Dosage: UNK
  2. CLINDAMYCIN HYDROCHLORIDE [Suspect]
     Indication: VOLVULUS
     Dosage: UNK
     Route: 065
  3. AMPICILLIN SODIUM [Suspect]
     Indication: VOLVULUS
     Dosage: UNK
     Route: 065

REACTIONS (1)
  - ACUTE GENERALISED EXANTHEMATOUS PUSTULOSIS [None]
